FAERS Safety Report 7576425-2 (Version None)
Quarter: 2011Q2

REPORT INFORMATION
  Report Type: 
  Country: None (occurrence: None)
  Receive Date: 20110628
  Receipt Date: 20110620
  Transmission Date: 20111010
  Serious: No
  Sender: FDA-Public Use
  Company Number: US-ELI_LILLY_AND_COMPANY-US201104006855

PATIENT
  Sex: Female

DRUGS (12)
  1. SIMVASTATIN [Concomitant]
     Indication: BLOOD CHOLESTEROL
  2. FORTEO [Suspect]
     Dosage: 20 UG, QD
  3. ATENOLOL [Concomitant]
  4. MELOXICAM [Concomitant]
     Dosage: UNK UG, UNK
  5. AMLODIPINE [Concomitant]
  6. POTASSIUM [Concomitant]
  7. LEVOTHYROXINE SODIUM [Concomitant]
  8. CALCIUM CARBONATE [Concomitant]
     Dosage: UNK, TID
  9. OMEPRAZOLE [Concomitant]
     Indication: NAUSEA
     Dosage: 20 UG, UNK
  10. FORTEO [Suspect]
     Dosage: 20 UG, QD
  11. FORTEO [Suspect]
     Indication: OSTEOPOROSIS
     Dosage: 20 UG, QD
     Dates: start: 20110330
  12. ASPIRIN [Concomitant]
     Indication: CARDIAC DISORDER

REACTIONS (8)
  - WEIGHT DECREASED [None]
  - ASTHENIA [None]
  - DECREASED APPETITE [None]
  - NAUSEA [None]
  - HYPOACUSIS [None]
  - MALAISE [None]
  - PAIN [None]
  - VOMITING [None]
